FAERS Safety Report 6736643-X (Version None)
Quarter: 2010Q2

REPORT INFORMATION
  Report Type: 
  Country: None (occurrence: None)
  Receive Date: 20100521
  Receipt Date: 20100511
  Transmission Date: 20101027
  Serious: Yes (Hospitalization, Other)
  Sender: FDA-Public Use
  Company Number: US-ELI_LILLY_AND_COMPANY-US201005004196

PATIENT
  Sex: Female

DRUGS (9)
  1. FORTEO [Suspect]
     Indication: OSTEOPOROSIS
     Dosage: 20 UG, DAILY (1/D)
     Dates: start: 20091112
  2. LISINOPRIL AND HYDROCHLOROTHIAZIDE [Concomitant]
  3. ASPIRIN [Concomitant]
  4. LEVOTHYROXINE SODIUM [Concomitant]
     Dosage: 25 UG, DAILY (1/D)
  5. ARICEPT [Concomitant]
     Dosage: 10 MG, DAILY (1/D)
  6. BUPROPION HCL [Concomitant]
     Dosage: 150 MG, DAILY (1/D)
  7. CALCIUM W/MAGNESIUM [Concomitant]
  8. VITAMIN D [Concomitant]
  9. OMEPRAZOLE [Concomitant]
     Dosage: 40 MG, 2/D

REACTIONS (2)
  - FALL [None]
  - FEMUR FRACTURE [None]
